FAERS Safety Report 5646165-5 (Version None)
Quarter: 2008Q1

REPORT INFORMATION
  Report Type: 
  Country: None (occurrence: None)
  Receive Date: 20080229
  Receipt Date: 20080219
  Transmission Date: 20080703
  Serious: Yes (Other)
  Sender: FDA-Public Use
  Company Number: GB-PFIZER INC-2008017512

PATIENT
  Age: 55 Year
  Sex: Male

DRUGS (1)
  1. CHANTIX [Suspect]
     Indication: SMOKING CESSATION THERAPY
     Route: 048

REACTIONS (6)
  - ABNORMAL BEHAVIOUR [None]
  - CHEST PAIN [None]
  - DEPRESSION [None]
  - MOOD SWINGS [None]
  - PSYCHOTIC BEHAVIOUR [None]
  - SLEEP DISORDER [None]
